FAERS Safety Report 4769040-7 (Version None)
Quarter: 2005Q3

REPORT INFORMATION
  Report Type: 
  Country: None (occurrence: None)
  Receive Date: 20050913
  Receipt Date: 20050912
  Transmission Date: 20060218
  Serious: Yes (Hospitalization)
  Sender: FDA-Public Use
  Company Number: FRWYE707431MAY05

PATIENT
  Age: 62 Year
  Sex: Male

DRUGS (8)
  1. EFFEXOR [Suspect]
     Dosage: 250 MG 1X PER 1 DAY ORAL; 150 MG 1X PER 1 DAY ORAL
     Route: 048
     Dates: start: 20050401, end: 20050508
  2. EFFEXOR [Suspect]
     Dosage: 250 MG 1X PER 1 DAY ORAL; 150 MG 1X PER 1 DAY ORAL
     Route: 048
     Dates: start: 20050509, end: 20050530
  3. AOTAL (ACAMPROSATE) [Concomitant]
  4. PLAVIX [Concomitant]
  5. ALLOPURINOL [Concomitant]
  6. PREDNISOLONE [Concomitant]
  7. LESCOL [Concomitant]
  8. ESPERAL (DISULFIRAM) [Concomitant]

REACTIONS (7)
  - AMNESIA [None]
  - BRADYPHRENIA [None]
  - BRAIN DAMAGE [None]
  - CONFUSIONAL STATE [None]
  - FOLATE DEFICIENCY [None]
  - GRAND MAL CONVULSION [None]
  - MALAISE [None]
